FAERS Safety Report 4815872-6 (Version None)
Quarter: 2005Q4

REPORT INFORMATION
  Report Type: 
  Country: None (occurrence: None)
  Receive Date: 20051031
  Receipt Date: 20050926
  Transmission Date: 20060501
  Serious: Yes (Hospitalization, Disabling, Other)
  Sender: FDA-Public Use
  Company Number: US-AVENTIS-200516858US

PATIENT
  Sex: Female

DRUGS (3)
  1. TAXOTERE [Suspect]
     Indication: OVARIAN CANCER
     Route: 042
     Dates: start: 20041001, end: 20050630
  2. TAXOTERE [Suspect]
     Indication: RECURRENT CANCER
     Route: 042
     Dates: start: 20041001, end: 20050630
  3. ATENOLOL [Concomitant]
     Indication: HYPERTENSION

REACTIONS (8)
  - CARDIAC FAILURE CONGESTIVE [None]
  - CARDIAC OUTPUT DECREASED [None]
  - CORONARY ARTERY DISEASE [None]
  - ELECTROCARDIOGRAM ST-T CHANGE [None]
  - LEFT VENTRICULAR END-DIASTOLIC PRESSURE INCREASED [None]
  - OEDEMA [None]
  - PULMONARY ARTERIAL WEDGE PRESSURE INCREASED [None]
  - PULMONARY HYPERTENSION [None]
